FAERS Safety Report 24668488 (Version 1)
Quarter: 2024Q4

REPORT INFORMATION
  Report Type: Report from Study
  Country: GR (occurrence: GR)
  Receive Date: 20241127
  Receipt Date: 20241127
  Transmission Date: 20250114
  Serious: Yes (Other)
  Sender: TAKEDA
  Company Number: GR-TAKEDA-2023TUS122642

PATIENT
  Sex: Female

DRUGS (4)
  1. HUMAN IMMUNOGLOBULIN G\HYALURONIDASE RECOMBINANT HUMAN [Suspect]
     Active Substance: HUMAN IMMUNOGLOBULIN G\HYALURONIDASE (HUMAN RECOMBINANT)
     Indication: Immunodeficiency
     Dosage: 1 DOSAGE FORM, MONTHLY
  2. HUMAN IMMUNOGLOBULIN G\HYALURONIDASE RECOMBINANT HUMAN [Suspect]
     Active Substance: HUMAN IMMUNOGLOBULIN G\HYALURONIDASE (HUMAN RECOMBINANT)
     Dosage: 30 MILLILITER, MONTHLY
     Dates: start: 202310
  3. ASPIRIN [Concomitant]
     Active Substance: ASPIRIN
     Indication: Arterial stenosis
     Dosage: 100 MILLIGRAM, QD
  4. BETAFERON [Concomitant]
     Active Substance: INTERFERON BETA-1B
     Indication: Vertigo
     Dosage: UNK

REACTIONS (11)
  - Meniere^s disease [Unknown]
  - Weight increased [Unknown]
  - Product storage error [Unknown]
  - Product preparation error [Recovered/Resolved]
  - Device use issue [Unknown]
  - Inner ear disorder [Unknown]
  - Vertigo [Recovered/Resolved]
  - Abdominal pain [Not Recovered/Not Resolved]
  - Vomiting [Unknown]
  - Injection site swelling [Not Recovered/Not Resolved]
  - Injection site pain [Not Recovered/Not Resolved]

NARRATIVE: CASE EVENT DATE: 20241109
